FAERS Safety Report 10620090 (Version 4)
Quarter: 2015Q3

REPORT INFORMATION
  Report Type: Spontaneous
  Country: US (occurrence: US)
  Receive Date: 20141202
  Receipt Date: 20150803
  Transmission Date: 20151125
  Serious: Yes (Life-Threatening, Hospitalization, Other)
  Sender: FDA-Public Use
  Company Number: US-BAYER-2014-176781

PATIENT
  Age: 26 Year
  Sex: Female
  Weight: 58.96 kg

DRUGS (9)
  1. MIRALAX [Concomitant]
     Active Substance: POLYETHYLENE GLYCOL 3350
  2. LORATADINE. [Concomitant]
     Active Substance: LORATADINE
  3. MACROBID [Concomitant]
     Active Substance: NITROFURANTOIN\NITROFURANTOIN MONOHYDRATE
  4. FERROUS SULFATE [Concomitant]
     Active Substance: FERROUS SULFATE\FERROUS SULFATE, DRIED
     Dosage: 325 MG, DAILY
  5. MIRENA [Suspect]
     Active Substance: LEVONORGESTREL
     Indication: CONTRACEPTION
     Dosage: 20 MCG/24HR, CONT
     Route: 015
     Dates: start: 20091026, end: 20120126
  6. PROMETHAZINE HCL W/PHENYLEPH.HCL/CODE.PHOS. [Concomitant]
  7. AZITHROMYCIN [Concomitant]
     Active Substance: AZITHROMYCIN ANHYDROUS
  8. EXCEDRIN [Concomitant]
     Active Substance: ACETAMINOPHEN\ASPIRIN\CAFFEINE
  9. AMOXICILLIN. [Concomitant]
     Active Substance: AMOXICILLIN

REACTIONS (11)
  - Vaginal haemorrhage [None]
  - Device dislocation [None]
  - Peritoneal haemorrhage [None]
  - Infection [None]
  - Anhedonia [None]
  - Device dislocation [None]
  - Ectopic pregnancy with contraceptive device [None]
  - Drug ineffective [None]
  - Injury [None]
  - Abdominal pain lower [None]
  - General physical health deterioration [None]

NARRATIVE: CASE EVENT DATE: 20111101
